FAERS Safety Report 14559474 (Version 1)
Quarter: 2018Q1

REPORT INFORMATION
  Report Type: Other
  Country: JP (occurrence: JP)
  Receive Date: 20180221
  Receipt Date: 20180221
  Transmission Date: 20180509
  Serious: Yes (Death, Other)
  Sender: FDA-Public Use
  Company Number: JP-EXELTIS USA INC.-2042422

PATIENT
  Age: 66 Year
  Sex: Female
  Weight: 40.5 kg

DRUGS (1)
  1. NUVESSA [Suspect]
     Active Substance: METRONIDAZOLE

REACTIONS (4)
  - Bradycardia [Fatal]
  - Coma [Fatal]
  - Depressed level of consciousness [Fatal]
  - Toxic leukoencephalopathy [Fatal]
